FAERS Safety Report 18799813 (Version 1)
Quarter: 2021Q1

REPORT INFORMATION
  Report Type: Spontaneous
  Country: US (occurrence: US)
  Receive Date: 20210128
  Receipt Date: 20210128
  Transmission Date: 20210419
  Serious: No
  Sender: FDA-Public Use
  Company Number: US-ASTRAZENECA-2021A000528

PATIENT
  Sex: Female

DRUGS (1)
  1. PULMICORT FLEXHALER [Suspect]
     Active Substance: BUDESONIDE
     Dosage: 90UG/INHAL TWO TIMES A DAY
     Route: 055
     Dates: start: 20201228

REACTIONS (4)
  - Incorrect dose administered [Unknown]
  - Intentional product misuse [Unknown]
  - COVID-19 [Unknown]
  - Device issue [Unknown]
